FAERS Safety Report 6026669-6 (Version None)
Quarter: 2008Q4

REPORT INFORMATION
  Report Type: 
  Country: None (occurrence: None)
  Receive Date: 20081231
  Receipt Date: 20081217
  Transmission Date: 20090506
  Serious: Yes (Other)
  Sender: FDA-Public Use
  Company Number: 8040534

PATIENT
  Age: 22 Year
  Sex: Female

DRUGS (4)
  1. KEPPRA [Suspect]
     Dosage: 500 MG 3/D
     Dates: start: 20070701, end: 20080801
  2. KEPPRA [Suspect]
     Dosage: 2000 MG
     Dates: start: 20080801
  3. VITAMIN TAB [Concomitant]
  4. FOLIC ACID [Concomitant]

REACTIONS (4)
  - DRUG EXPOSURE DURING PREGNANCY [None]
  - OBESITY [None]
  - PREGNANCY [None]
  - PREMATURE LABOUR [None]
